FAERS Safety Report 5807550-1 (Version None)
Quarter: 2008Q3

REPORT INFORMATION
  Report Type: 
  Country: None (occurrence: None)
  Receive Date: 20080711
  Receipt Date: 20080630
  Transmission Date: 20090109
  Serious: No
  Sender: FDA-Public Use
  Company Number: FR-ROCHE-573914

PATIENT
  Age: 40 Year
  Sex: Female

DRUGS (2)
  1. ISOTRETINOIN [Suspect]
     Indication: SEBORRHOEA
     Dosage: DOSAGE: TOTAL 30 TABLETS OF 20 MG.
     Route: 065
     Dates: start: 20080101, end: 20080401
  2. ISOTRETINOIN [Suspect]
     Dosage: DOSAGE: TOTAL 2 TABLETS OF 20 MG
     Route: 065
     Dates: start: 20080510, end: 20080517

REACTIONS (2)
  - NO ADVERSE EVENT [None]
  - PREGNANCY [None]
